FAERS Safety Report 14802070 (Version 1)
Quarter: 2018Q2

REPORT INFORMATION
  Report Type: Spontaneous
  Country: PL (occurrence: PL)
  Receive Date: 20180424
  Receipt Date: 20180424
  Transmission Date: 20180711
  Serious: Yes (Death, Life-Threatening, Hospitalization, Disabling, Other)
  Sender: FDA-Public Use
  Company Number: PL-MYLANLABS-2018M1025010

PATIENT
  Age: 47 Year
  Sex: Female

DRUGS (4)
  1. RIFAMPICIN [Suspect]
     Active Substance: RIFAMPIN
     Indication: URINARY TRACT INFECTION BACTERIAL
     Dosage: 600 MG, Q2D
     Route: 048
  2. RIFAMPICIN [Suspect]
     Active Substance: RIFAMPIN
     Indication: KLEBSIELLA INFECTION
  3. KOLISTIN ALVOGEN [Suspect]
     Active Substance: COLISTIMETHATE SODIUM
     Indication: KLEBSIELLA INFECTION
     Dosage: 2000000 IU, Q4D (4 X 2 MLN IU INTRAVENOUS)
     Route: 042
  4. KOLISTIN ALVOGEN [Suspect]
     Active Substance: COLISTIMETHATE SODIUM
     Indication: URINARY TRACT INFECTION BACTERIAL

REACTIONS (3)
  - Drug ineffective [Fatal]
  - Acute kidney injury [Fatal]
  - Death [Fatal]
